FAERS Safety Report 25137402 (Version 4)
Quarter: 2025Q2

REPORT INFORMATION
  Report Type: Report from Study
  Country: US (occurrence: US)
  Receive Date: 20250329
  Receipt Date: 20250501
  Transmission Date: 20250716
  Serious: Yes (Hospitalization, Other)
  Sender: ABBVIE
  Company Number: US-ABBVIE-6198093

PATIENT
  Age: 52 Year
  Sex: Male
  Weight: 68.038 kg

DRUGS (7)
  1. HUMIRA [Suspect]
     Active Substance: ADALIMUMAB
     Indication: Crohn^s disease
     Dosage: CITRATE FREE?FORM STRENGTH: 40 MG, SOLUTION FOR INJECTION IN PRE-FILLED PEN
     Route: 058
     Dates: start: 202203, end: 202308
  2. HUMIRA [Suspect]
     Active Substance: ADALIMUMAB
     Dosage: FORM STRENGTH: 40 MG, SOLUTION FOR INJECTION IN PRE-FILLED PEN
     Route: 058
     Dates: start: 202406, end: 20250221
  3. OLANZAPINE [Concomitant]
     Active Substance: OLANZAPINE
     Indication: Schizophrenia
  4. CLONIDINE [Concomitant]
     Active Substance: CLONIDINE
     Indication: Schizophrenia
  5. CLONIDINE [Concomitant]
     Active Substance: CLONIDINE
     Indication: Schizophrenia
  6. ATIVAN [Concomitant]
     Active Substance: LORAZEPAM
     Indication: Schizophrenia
  7. PREDNISONE [Suspect]
     Active Substance: PREDNISONE
     Indication: Crohn^s disease
     Route: 065

REACTIONS (3)
  - Catatonia [Recovered/Resolved]
  - Crohn^s disease [Recovered/Resolved]
  - Pulmonary embolism [Recovered/Resolved]

NARRATIVE: CASE EVENT DATE: 20250201
